FAERS Safety Report 11883773 (Version 3)
Quarter: 2016Q1

REPORT INFORMATION
  Report Type: Spontaneous
  Country: US (occurrence: US)
  Receive Date: 20160101
  Receipt Date: 20160322
  Transmission Date: 20160526
  Serious: Yes (Hospitalization)
  Sender: FDA-Public Use
  Company Number: US-ASTRAZENECA-2015SF30400

PATIENT
  Age: 54 Year
  Sex: Male

DRUGS (6)
  1. NEXIUM [Suspect]
     Active Substance: ESOMEPRAZOLE MAGNESIUM
     Route: 048
  2. ELECTROLYTES NOS [Concomitant]
     Active Substance: ELECTROLYTES NOS
  3. PRILOSEC [Suspect]
     Active Substance: OMEPRAZOLE MAGNESIUM
     Indication: GASTROOESOPHAGEAL REFLUX DISEASE
     Route: 048
     Dates: end: 2008
  4. ATENOLOL. [Concomitant]
     Active Substance: ATENOLOL
     Dates: start: 1988
  5. PRILOSEC [Suspect]
     Active Substance: OMEPRAZOLE MAGNESIUM
     Indication: GASTROOESOPHAGEAL REFLUX DISEASE
     Route: 048
     Dates: end: 2008
  6. CELEBREX [Concomitant]
     Active Substance: CELECOXIB

REACTIONS (9)
  - Drug ineffective [Unknown]
  - Muscle twitching [Not Recovered/Not Resolved]
  - Muscle spasms [Not Recovered/Not Resolved]
  - Off label use [Recovered/Resolved]
  - Electrolyte imbalance [Not Recovered/Not Resolved]
  - Tremor [Not Recovered/Not Resolved]
  - Intentional product misuse [Unknown]
  - Cold sweat [Not Recovered/Not Resolved]
  - Bradycardia [Unknown]

NARRATIVE: CASE EVENT DATE: 2007
